FAERS Safety Report 18294294 (Version 1)
Quarter: 2020Q3

REPORT INFORMATION
  Report Type: Spontaneous
  Country: US (occurrence: US)
  Receive Date: 20200921
  Receipt Date: 20200921
  Transmission Date: 20201103
  Serious: Yes (Death)
  Sender: FDA-Public Use
  Company Number: None

PATIENT
  Age: 70 Year
  Sex: Male

DRUGS (5)
  1. LEUVOBORIN CA [Concomitant]
  2. LISINOPRL [Concomitant]
     Active Substance: LISINOPRIL
  3. OXALIPLATIN 50MG/10ML SDV INJ [Suspect]
     Active Substance: OXALIPLATIN
     Indication: GASTRIC CANCER
     Dosage: OTHER FREQUENCY:1 + 15; IV INFUSION ? Q28D CYCLE?
     Route: 042
     Dates: start: 20200807, end: 20200824
  4. ONDANSETRON [Concomitant]
     Active Substance: ONDANSETRON
  5. FLUOROURACIL. [Concomitant]
     Active Substance: FLUOROURACIL

REACTIONS (1)
  - Death [None]
